FAERS Safety Report 23157150 (Version 6)
Quarter: 2024Q3

REPORT INFORMATION
  Report Type: Report from Study
  Country: NL (occurrence: NL)
  Receive Date: 20231108
  Receipt Date: 20240922
  Transmission Date: 20241017
  Serious: Yes (Other)
  Sender: ABBVIE
  Company Number: NL-ABBVIE-5485818

PATIENT
  Sex: Female

DRUGS (17)
  1. CARBIDOPA\LEVODOPA [Suspect]
     Active Substance: CARBIDOPA\LEVODOPA
     Indication: Parkinson^s disease
     Dosage: MD: 7.5 ML, CD: 6.5 ML/H, ED: 4.0 ML; CND: 5.1 ML/H, END: 2.0 ML, REMAINS AT 24 HOURS?LAST ADMIN ...
     Route: 050
     Dates: start: 20240124
  2. CARBIDOPA\LEVODOPA [Suspect]
     Active Substance: CARBIDOPA\LEVODOPA
     Dosage: MD: 7.5 ML, CD: 7.0 ML/H, ED: 4.0 ML; CND: 5.5 ML/H, END: 2.0 ML? DURATION TEXT: REMAINS AT 24 HOURS
     Route: 050
     Dates: start: 20240618, end: 20240819
  3. CARBIDOPA\LEVODOPA [Suspect]
     Active Substance: CARBIDOPA\LEVODOPA
     Dosage: MD: 7.5 ML, CD: 6.4 ML/H, ED: 4.0 ML; ND: 0.0 ML, END: 2.0 ML, CND: 4.7 ML/H?DURATION TEXT: REMAI...
     Route: 050
     Dates: start: 20230626, end: 20230817
  4. CARBIDOPA\LEVODOPA [Suspect]
     Active Substance: CARBIDOPA\LEVODOPA
     Dosage: ND: 0.0 ML, END: 2.0 ML, CND: 4.9 ML/H?DURATION TEXT: REMAINS AT 24 HOURS
     Route: 050
     Dates: start: 20230926, end: 20231102
  5. CARBIDOPA\LEVODOPA [Suspect]
     Active Substance: CARBIDOPA\LEVODOPA
     Dosage: REMAINS AT 24 HOURS
     Route: 050
     Dates: start: 20191014
  6. CARBIDOPA\LEVODOPA [Suspect]
     Active Substance: CARBIDOPA\LEVODOPA
     Route: 050
  7. CARBIDOPA\LEVODOPA [Suspect]
     Active Substance: CARBIDOPA\LEVODOPA
     Dosage: CD: 6.6 ML/H; CND: 4.8 ML/H, REMAINS AT 24 HOURS
     Route: 050
  8. CARBIDOPA\LEVODOPA [Suspect]
     Active Substance: CARBIDOPA\LEVODOPA
     Dosage: MD: 7.5 ML, CD: 7.0 ML/H, ED: 4.0 ML; CND: 5.6 ML/H, END: 2.0 ML
     Route: 050
     Dates: start: 20240819
  9. CARBIDOPA\LEVODOPA [Suspect]
     Active Substance: CARBIDOPA\LEVODOPA
     Dosage: CD: 7.0 ML/H; CND: 5.6 ML/H? DURATION TEXT: REMAINS AT 24 HOURS
     Route: 050
     Dates: start: 20240606, end: 20240618
  10. CARBIDOPA\LEVODOPA [Suspect]
     Active Substance: CARBIDOPA\LEVODOPA
     Dosage: MD: 7.5 ML, CD: 6.5 ML/H, ED: 4.0 ML; ND: 0.0 ML, END: 2.0 ML, CND: 4.7 ML/H?DURATION TEXT: REMAI...
     Route: 050
     Dates: start: 20230817, end: 20230926
  11. CARBIDOPA\LEVODOPA [Suspect]
     Active Substance: CARBIDOPA\LEVODOPA
     Dosage: CND: 5.1 ML/H, END: 2.0 ML, REMAINS AT 24 HOURS
     Route: 050
     Dates: start: 20231207, end: 20240124
  12. CARBIDOPA\LEVODOPA [Suspect]
     Active Substance: CARBIDOPA\LEVODOPA
     Dosage: END: 2.0 ML, CND: 4.9 ML/H, DURATION TEXT: REMAINS AT 24 HOURS
     Route: 050
     Dates: start: 20231102, end: 20231207
  13. CARBIDOPA\LEVODOPA [Suspect]
     Active Substance: CARBIDOPA\LEVODOPA
     Dosage: MD: 7.5 ML, CD: 6.5 ML/H, ED: 4.0 ML; CND: 5.1 ML/H, END: 2.0 ML
     Route: 050
     Dates: start: 20240124, end: 20240606
  14. BUMETANIDE [Concomitant]
     Active Substance: BUMETANIDE
     Indication: Cardiac failure
     Dosage: 0.5 TABLET
  15. FUCIDIN [Concomitant]
     Active Substance: FUSIDATE SODIUM
     Indication: Stoma site inflammation
     Route: 061
  16. ZINC [Concomitant]
     Active Substance: ZINC
     Indication: Stoma site erythema
     Route: 061
  17. Sudocrem nappy [Concomitant]
     Indication: Stoma site erythema
     Route: 061

REACTIONS (46)
  - Cardiac failure [Not Recovered/Not Resolved]
  - Oral disorder [Not Recovered/Not Resolved]
  - Memory impairment [Not Recovered/Not Resolved]
  - Cardiac disorder [Not Recovered/Not Resolved]
  - Motor dysfunction [Not Recovered/Not Resolved]
  - Tension [Not Recovered/Not Resolved]
  - Speech disorder [Not Recovered/Not Resolved]
  - Stress [Not Recovered/Not Resolved]
  - Abdominal distension [Not Recovered/Not Resolved]
  - Obsessive-compulsive disorder [Not Recovered/Not Resolved]
  - Unevaluable event [Not Recovered/Not Resolved]
  - Anger [Unknown]
  - Fistula [Not Recovered/Not Resolved]
  - Malaise [Recovered/Resolved]
  - Stoma site discharge [Not Recovered/Not Resolved]
  - Parkinson^s disease [Not Recovered/Not Resolved]
  - Disinhibition [Not Recovered/Not Resolved]
  - Enteral nutrition [Not Recovered/Not Resolved]
  - Loss of personal independence in daily activities [Not Recovered/Not Resolved]
  - Abscess [Not Recovered/Not Resolved]
  - Therapeutic product effect incomplete [Unknown]
  - Drug ineffective [Not Recovered/Not Resolved]
  - Pleural effusion [Not Recovered/Not Resolved]
  - Frustration tolerance decreased [Not Recovered/Not Resolved]
  - Cognitive disorder [Not Recovered/Not Resolved]
  - Dysphagia [Not Recovered/Not Resolved]
  - Muscle rigidity [Not Recovered/Not Resolved]
  - Impaired gastric emptying [Not Recovered/Not Resolved]
  - Bowel movement irregularity [Not Recovered/Not Resolved]
  - On and off phenomenon [Not Recovered/Not Resolved]
  - Constipation [Not Recovered/Not Resolved]
  - Hallucination [Not Recovered/Not Resolved]
  - Inflammation [Recovering/Resolving]
  - Device issue [Recovered/Resolved]
  - Large intestine infection [Not Recovered/Not Resolved]
  - Cognitive disorder [Not Recovered/Not Resolved]
  - Fluid intake restriction [Not Recovered/Not Resolved]
  - Weight decreased [Not Recovered/Not Resolved]
  - Stoma site reaction [Not Recovered/Not Resolved]
  - Unevaluable event [Not Recovered/Not Resolved]
  - Fatigue [Not Recovered/Not Resolved]
  - Stoma site discharge [Not Recovered/Not Resolved]
  - Nausea [Not Recovered/Not Resolved]
  - Thyroid disorder [Not Recovered/Not Resolved]
  - Stoma site erythema [Not Recovered/Not Resolved]
  - Quality of life decreased [Not Recovered/Not Resolved]
